FAERS Safety Report 5339447-8 (Version None)
Quarter: 2007Q2

REPORT INFORMATION
  Report Type: 
  Country: None (occurrence: None)
  Receive Date: 20070404
  Receipt Date: 20060530
  Transmission Date: 20071010
  Serious: Yes (Hospitalization)
  Sender: FDA-Public Use
  Company Number: 2006070329

PATIENT
  Age: 34 Year
  Sex: Male
  Weight: 74.8435 kg

DRUGS (1)
  1. GEODON [Suspect]
     Indication: BIPOLAR DISORDER
     Dosage: 120 MG (1 IN 1 D)

REACTIONS (5)
  - DRUG INEFFECTIVE [None]
  - INSOMNIA [None]
  - MIGRAINE WITH AURA [None]
  - PSYCHOTIC DISORDER [None]
  - VISUAL ACUITY REDUCED [None]
